FAERS Safety Report 5763873-6 (Version None)
Quarter: 2008Q2

REPORT INFORMATION
  Report Type: 
  Country: None (occurrence: None)
  Receive Date: 20080602
  Receipt Date: 20080204
  Transmission Date: 20081010
  Serious: Yes (Other)
  Sender: FDA-Public Use
  Company Number: PHEH2007US13924

PATIENT
  Age: 82 Year
  Sex: Female
  Weight: 50.8 kg

DRUGS (5)
  1. TEKTURNA [Suspect]
     Indication: HYPERTENSION
     Dosage: QD
     Dates: start: 20070824, end: 20070901
  2. DIOVAN [Concomitant]
  3. LOTREL [Concomitant]
  4. ATENOLOL [Concomitant]
  5. ACE INHIBITOR NOS (NO INGREDIENTS/SUBSTANCES) [Concomitant]

REACTIONS (3)
  - ABNORMAL SENSATION IN EYE [None]
  - LIP OEDEMA [None]
  - LIP SWELLING [None]
